FAERS Safety Report 5512059-9 (Version None)
Quarter: 2007Q4

REPORT INFORMATION
  Report Type: 
  Country: None (occurrence: None)
  Receive Date: 20071109
  Receipt Date: 20071102
  Transmission Date: 20080405
  Serious: Yes (Other)
  Sender: FDA-Public Use
  Company Number: UG-BOEHRINGER INGELHEIM PHARMACEUTICALS, INC.-2007-BP-23994BP

PATIENT
  Weight: 2 kg

DRUGS (2)
  1. VIRAMUNE [Suspect]
     Indication: HIV INFECTION
     Route: 048
  2. COMBIVIR [Suspect]
     Route: 048

REACTIONS (1)
  - SMALL FOR DATES BABY [None]
